FAERS Safety Report 22301627 (Version 2)
Quarter: 2023Q2

REPORT INFORMATION
  Report Type: Report from Study
  Country: US (occurrence: US)
  Receive Date: 20230510
  Receipt Date: 20230515
  Transmission Date: 20230722
  Serious: Yes (Hospitalization, Other)
  Sender: FDA-Public Use
  Company Number: US-ABBVIE-4760143

PATIENT
  Age: 39 Year
  Sex: Female

DRUGS (1)
  1. RINVOQ [Suspect]
     Active Substance: UPADACITINIB
     Indication: Psoriatic arthropathy
     Dosage: FORM STRENGTH: 15 MILLIGRAM, ONSET DATE OF ARTHRITIS SYMPTOMS GOTTEN WORSE, GENERALIZED SWELLING ...
     Route: 048
     Dates: start: 20230209, end: 20230413

REACTIONS (4)
  - Pulmonary oedema [Recovering/Resolving]
  - Generalised oedema [Unknown]
  - Arthritis [Unknown]
  - Pain [Unknown]

NARRATIVE: CASE EVENT DATE: 20230412
